FAERS Safety Report 5249252-9 (Version None)
Quarter: 2007Q1

REPORT INFORMATION
  Report Type: 
  Country: None (occurrence: None)
  Receive Date: 20070228
  Receipt Date: 20070219
  Transmission Date: 20070707
  Serious: Yes (Other)
  Sender: FDA-Public Use
  Company Number: DE-ROCHE-481558

PATIENT
  Sex: Male
  Weight: 96 kg

DRUGS (3)
  1. TAMIFLU [Suspect]
     Indication: INFLUENZA
     Route: 048
     Dates: start: 20070131, end: 20070202
  2. ACERCOMP [Concomitant]
     Dosage: TAKEN FOR YEARS.
     Route: 048
  3. ADALAT [Concomitant]
     Dosage: TAKEN FOR YEARS. DRUG REPORTED AS ADALAT SL.
     Route: 048

REACTIONS (3)
  - DIPLOPIA [None]
  - EYELID FUNCTION DISORDER [None]
  - IIIRD NERVE PARESIS [None]
